FAERS Safety Report 9699764 (Version 1)
Quarter: 2013Q4

REPORT INFORMATION
  Report Type: Spontaneous
  Country: US (occurrence: US)
  Receive Date: 20131120
  Receipt Date: 20131120
  Transmission Date: 20140711
  Serious: Yes (Death, Life-Threatening, Hospitalization)
  Sender: FDA-Public Use
  Company Number: US-UCBSA-103379

PATIENT
  Age: 69 Year
  Sex: Male

DRUGS (15)
  1. KEPPRA [Suspect]
  2. DASATINIB [Suspect]
     Indication: GLIOBLASTOMA MULTIFORME
     Dates: end: 20130823
  3. TEMOZOLOMIDE [Suspect]
     Indication: GLIOBLASTOMA MULTIFORME
     Dosage: DOSE: 75 MG/SQ METER 1 DAY; TOTAL DOSE: 5885 MG
     Dates: start: 20130710, end: 20130823
  4. PRAVACHOL [Suspect]
  5. CLOTRIMAZOLE [Suspect]
  6. DIFLUCAN [Suspect]
  7. ZOFRAN [Suspect]
  8. OXYCODONE [Suspect]
  9. PLACEBO [Suspect]
     Indication: GLIOBLASTOMA MULTIFORME
  10. BACID [Suspect]
  11. BACTRIM [Suspect]
  12. DEXAMETHASONE [Suspect]
  13. VITAMIN D [Suspect]
  14. COMPAZINE [Concomitant]
  15. LOSARTAN [Concomitant]

REACTIONS (9)
  - Death [Fatal]
  - Herpes virus infection [Unknown]
  - Sepsis [Unknown]
  - Wound infection [Recovering/Resolving]
  - Muscular weakness [Unknown]
  - Decreased appetite [Unknown]
  - Dehydration [Unknown]
  - Fall [Unknown]
  - Glioblastoma multiforme [Unknown]
